FAERS Safety Report 4755230-6 (Version None)
Quarter: 2005Q3

REPORT INFORMATION
  Report Type: 
  Country: None (occurrence: None)
  Receive Date: 20050829
  Receipt Date: 20050309
  Transmission Date: 20060218
  Serious: Yes (Other)
  Sender: FDA-Public Use
  Company Number: US-MERCK-0503USA01988

PATIENT
  Age: 43 Year
  Sex: Female
  Weight: 57 kg

DRUGS (9)
  1. VIOXX [Suspect]
     Indication: MUSCULOSKELETAL PAIN
     Route: 048
     Dates: start: 20001110, end: 20020530
  2. VIOXX [Suspect]
     Route: 048
     Dates: start: 20001110, end: 20020530
  3. VIOXX [Suspect]
     Indication: ARTHRITIS
     Route: 048
     Dates: start: 20001110, end: 20020530
  4. VIOXX [Suspect]
     Route: 048
     Dates: start: 20001110, end: 20020530
  5. PREDNISONE [Concomitant]
     Route: 065
  6. PLAQUENIL [Concomitant]
     Route: 065
  7. AXID [Concomitant]
     Route: 065
  8. LEVSIN [Concomitant]
     Route: 065
  9. BEXTRA [Concomitant]
     Route: 065

REACTIONS (13)
  - ABDOMINAL DISTENSION [None]
  - ALOPECIA [None]
  - ARTHRALGIA [None]
  - BLOOD PRESSURE SYSTOLIC INCREASED [None]
  - CEREBRAL INFARCTION [None]
  - CEREBROVASCULAR ACCIDENT [None]
  - CHEST PAIN [None]
  - HYPOAESTHESIA [None]
  - OSTEOPOROSIS [None]
  - PANCREATIC CARCINOMA [None]
  - RECTAL POLYP [None]
  - SINUS DISORDER [None]
  - TRANSIENT ISCHAEMIC ATTACK [None]
